FAERS Safety Report 13098471 (Version 3)
Quarter: 2017Q2

REPORT INFORMATION
  Report Type: Report from Study
  Country: CA (occurrence: CA)
  Receive Date: 20170109
  Receipt Date: 20170419
  Transmission Date: 20170830
  Serious: Yes (Hospitalization, Other)
  Sender: FDA-Public Use
  Company Number: CA-JNJFOC-20161206773

PATIENT
  Age: 59 Year
  Sex: Male

DRUGS (1)
  1. SIMPONI [Suspect]
     Active Substance: GOLIMUMAB
     Indication: PSORIATIC ARTHROPATHY
     Route: 058
     Dates: start: 20160829

REACTIONS (11)
  - Adrenal mass [Unknown]
  - Discomfort [Unknown]
  - Pollakiuria [Unknown]
  - Hypertension [Recovering/Resolving]
  - Clostridium difficile infection [Recovered/Resolved]
  - Blood aldosterone increased [Unknown]
  - Cortisol increased [Unknown]
  - Fall [Unknown]
  - Chills [Unknown]
  - Back pain [Unknown]
  - Contusion [Recovering/Resolving]

NARRATIVE: CASE EVENT DATE: 2016
